FAERS Safety Report 14261763 (Version 1)
Quarter: 2017Q4

REPORT INFORMATION
  Report Type: Spontaneous
  Country: US (occurrence: US)
  Receive Date: 20171208
  Receipt Date: 20171208
  Transmission Date: 20180321
  Serious: No
  Sender: FDA-Public Use
  Company Number: US-CIPLA LTD.-2017US04576

PATIENT

DRUGS (8)
  1. GABAPENTIN. [Suspect]
     Active Substance: GABAPENTIN
     Indication: DIABETIC NEUROPATHY
     Dosage: 600 MG, QD (1 TABLET ONCE PER DAY)
     Route: 065
  2. INVOKANA [Concomitant]
     Active Substance: CANAGLIFLOZIN
     Indication: TYPE 2 DIABETES MELLITUS
     Dosage: 500 MG, ONE IN THE MORNING
     Route: 065
  3. ZOLOFT [Concomitant]
     Active Substance: SERTRALINE HYDROCHLORIDE
     Indication: DEPRESSION
     Dosage: 20 MG, TWICE A DAY IF NEEDED
     Route: 065
  4. MECLIZINE [Concomitant]
     Active Substance: MECLIZINE HYDROCHLORIDE
     Indication: VERTIGO
     Dosage: 20 MG, QD (MAY HAVE TO TAKE 2-3 DEPENDING ON HOW BAD)
     Route: 065
  5. BAYER [Concomitant]
     Active Substance: ASPIRIN
     Indication: CARDIAC DISORDER
     Dosage: 81 MG, UNK
     Route: 065
  6. BAYER [Concomitant]
     Active Substance: ASPIRIN
     Indication: CHEST PAIN
  7. BAYER [Concomitant]
     Active Substance: ASPIRIN
     Indication: STRESS
  8. GABAPENTIN. [Suspect]
     Active Substance: GABAPENTIN
     Dosage: 1200 MG, MORNING AND NIGHT
     Route: 065

REACTIONS (1)
  - Drug ineffective [Unknown]
